FAERS Safety Report 9519135 (Version 1)
Quarter: 2013Q1

REPORT INFORMATION
  Report Type: Spontaneous
  Country: US (occurrence: None)
  Receive Date: 20130305
  Receipt Date: 20130305
  Transmission Date: 20140127
  Serious: Yes (Other)
  Sender: FDA-Public Use
  Company Number: 163-21880-12011076

PATIENT
  Age: 60 Year
  Sex: Male

DRUGS (2)
  1. REVLIMID [Suspect]
     Indication: PLASMA CELL MYELOMA
     Dosage: 10 MG, QD, PO
     Route: 048
     Dates: start: 201008, end: 201101
  2. ACYCLOVIR (ACICLOVIR) (UNKNOWN) [Concomitant]

REACTIONS (2)
  - Pharyngitis [None]
  - Thrombocytopenia [None]
